FAERS Safety Report 9593524 (Version 1)
Quarter: 2013Q4

REPORT INFORMATION
  Report Type: Spontaneous
  Country: US (occurrence: US)
  Receive Date: 20131004
  Receipt Date: 20131004
  Transmission Date: 20140711
  Serious: No
  Sender: FDA-Public Use
  Company Number: US-009507513-1309USA013310

PATIENT
  Age: 26 Year
  Sex: Male

DRUGS (2)
  1. TEMODAR [Suspect]
     Indication: EWING^S SARCOMA RECURRENT
     Dosage: 5 CAPSULES DAILY EVERY 28 DAYS
     Route: 048
     Dates: start: 201306, end: 20130911
  2. IRINOTECAN HYDROCHLORIDE [Concomitant]
     Dosage: IV INFUSION
     Route: 042

REACTIONS (1)
  - Therapeutic response decreased [Unknown]
